FAERS Safety Report 10725233 (Version 1)
Quarter: 2015Q1

REPORT INFORMATION
  Report Type: Spontaneous
  Country: US (occurrence: US)
  Receive Date: 20150120
  Receipt Date: 20150120
  Transmission Date: 20150721
  Serious: Yes (Life-Threatening, Hospitalization)
  Sender: FDA-Public Use
  Company Number: US-JNJFOC-20150108590

PATIENT

DRUGS (1)
  1. HYDROCORTISONE. [Suspect]
     Active Substance: HYDROCORTISONE
     Indication: PRODUCT USED FOR UNKNOWN INDICATION
     Route: 065

REACTIONS (13)
  - Retinopathy of prematurity [Unknown]
  - Hydrocephalus [Unknown]
  - Patent ductus arteriosus [Unknown]
  - Intestinal perforation [Unknown]
  - Cerebral palsy [Unknown]
  - Bronchopulmonary dysplasia [Unknown]
  - Nervous system disorder [Unknown]
  - Necrotising colitis [Unknown]
  - Hypertonia [Unknown]
  - Hypotonia [Unknown]
  - Hypotension [Unknown]
  - Sepsis [Unknown]
  - Intraventricular haemorrhage [Unknown]
